FAERS Safety Report 13746583 (Version 3)
Quarter: 2017Q3

REPORT INFORMATION
  Report Type: Spontaneous
  Country: VE (occurrence: VE)
  Receive Date: 20170712
  Receipt Date: 20170829
  Transmission Date: 20171127
  Serious: Yes (Hospitalization, Other)
  Sender: FDA-Public Use
  Company Number: PHHY2017VE095472

PATIENT
  Age: 7 Year
  Sex: Female
  Weight: 27 kg

DRUGS (6)
  1. VALPRON//VALPROATE SODIUM [Suspect]
     Active Substance: VALPROATE SODIUM
     Indication: PRODUCT USED FOR UNKNOWN INDICATION
     Route: 065
  2. FRISIUM [Concomitant]
     Active Substance: CLOBAZAM
     Indication: EPILEPSY
     Dosage: 10 MG, QD
     Route: 065
  3. TRILEPTAL [Suspect]
     Active Substance: OXCARBAZEPINE
     Indication: EPILEPSY
     Dosage: UNK
     Route: 048
     Dates: start: 201508
  4. KEPPRA [Concomitant]
     Active Substance: LEVETIRACETAM
     Indication: EPILEPSY
     Dosage: 1000 MG, UNK
     Route: 065
  5. TRILEPTAL [Suspect]
     Active Substance: OXCARBAZEPINE
     Indication: SEIZURE
     Dosage: 300 MG, Q8H
     Route: 048
     Dates: start: 201704
  6. TRILEPTAL [Suspect]
     Active Substance: OXCARBAZEPINE
     Dosage: 0.5 DF (600 MG), Q8H
     Route: 048
     Dates: start: 201704

REACTIONS (11)
  - Cerebral artery occlusion [Unknown]
  - Drug dependence [Unknown]
  - Wrong technique in product usage process [Unknown]
  - Seizure [Unknown]
  - Demyelination [Unknown]
  - Enlarged cerebral perivascular spaces [Unknown]
  - Drug ineffective [Unknown]
  - Central nervous system lesion [Unknown]
  - Encephalomalacia [Unknown]
  - Cerebral calcification [Unknown]
  - Incorrect product formulation administered [Unknown]
